FAERS Safety Report 4513219-6 (Version None)
Quarter: 2004Q4

REPORT INFORMATION
  Report Type: 
  Country: None (occurrence: None)
  Receive Date: 20041124
  Receipt Date: 20041111
  Transmission Date: 20050328
  Serious: Yes (Other)
  Sender: FDA-Public Use
  Company Number: 2004-UK-01188UK

PATIENT
  Age: 62 Year
  Sex: Female

DRUGS (3)
  1. MOBIC [Suspect]
     Indication: ARTHRALGIA
     Dosage: 15 MG (ONCE DAILY),PO
     Route: 048
     Dates: start: 20041008, end: 20041105
  2. PARACETAMOL (PARACETAMOL) [Concomitant]
  3. EVOREL CONTI(KLIOGEST ^NOVO IDUSTRI^) [Concomitant]

REACTIONS (1)
  - HEMIANOPIA HOMONYMOUS [None]
